FAERS Safety Report 5230165-3 (Version None)
Quarter: 2007Q1

REPORT INFORMATION
  Report Type: 
  Country: None (occurrence: None)
  Receive Date: 20070206
  Receipt Date: 20060215
  Transmission Date: 20070707
  Serious: No
  Sender: FDA-Public Use
  Company Number: US-GLAXOSMITHKLINE-A0593883A

PATIENT
  Age: 47 Year
  Sex: Female

DRUGS (3)
  1. PAXIL CR [Suspect]
     Dosage: 12.5MG PER DAY
     Route: 048
     Dates: start: 20060206
  2. ULTRAM [Concomitant]
  3. REQUIP [Concomitant]

REACTIONS (1)
  - MICTURITION URGENCY [None]
